FAERS Safety Report 16843236 (Version 1)
Quarter: 2019Q4

REPORT INFORMATION
  Report Type: Spontaneous
  Country: US (occurrence: US)
  Receive Date: 20190923
  Receipt Date: 20190923
  Transmission Date: 20200122
  Serious: Yes (Hospitalization, Disabling, Other)
  Sender: FDA-Public Use
  Company Number: None

PATIENT
  Sex: Female

DRUGS (1)
  1. NATPARA (PARATHYROID HORMONE) [Suspect]
     Active Substance: PARATHYROID HORMONE
     Indication: HYPOCALCAEMIA
     Dates: start: 20170401, end: 20190210

REACTIONS (7)
  - Nausea [None]
  - Vomiting [None]
  - Decreased appetite [None]
  - Dehydration [None]
  - Feeding disorder [None]
  - Constipation [None]
  - Malaise [None]
